FAERS Safety Report 6717879-0 (Version None)
Quarter: 2010Q2

REPORT INFORMATION
  Report Type: 
  Country: None (occurrence: None)
  Receive Date: 20100507
  Receipt Date: 20100507
  Transmission Date: 20101027
  Serious: Yes (Death, Hospitalization)
  Sender: FDA-Public Use
  Company Number: None

PATIENT
  Sex: Female
  Weight: 84 kg

DRUGS (3)
  1. CYCLOPHOSPHAMIDE [Suspect]
     Dosage: 796.5 MG
     Dates: end: 20100407
  2. FLUDARABINE PHOSPHATE [Suspect]
     Dosage: 106.2 MG
     Dates: end: 20100407
  3. RITUXIMAB (MOAB C2B8 ANTI CD20, CHIMERIC) [Suspect]
     Dosage: 885 MG
     Dates: end: 20100405

REACTIONS (11)
  - ACIDOSIS [None]
  - BLOOD PRESSURE SYSTOLIC DECREASED [None]
  - BUNDLE BRANCH BLOCK RIGHT [None]
  - CALCIUM IONISED ABNORMAL [None]
  - CULTURE URINE POSITIVE [None]
  - ELECTROMECHANICAL DISSOCIATION [None]
  - ESCHERICHIA INFECTION [None]
  - FEBRILE NEUTROPENIA [None]
  - PNEUMONIA [None]
  - PROTEUS INFECTION [None]
  - UNRESPONSIVE TO STIMULI [None]
